FAERS Safety Report 6957225-0 (Version None)
Quarter: 2010Q3

REPORT INFORMATION
  Report Type: 
  Country: None (occurrence: None)
  Receive Date: 20100831
  Receipt Date: 20100823
  Transmission Date: 20110219
  Serious: No
  Sender: FDA-Public Use
  Company Number: 2009BI021032

PATIENT
  Sex: Male
  Weight: 79 kg

DRUGS (2)
  1. TYSABRI [Suspect]
     Indication: MULTIPLE SCLEROSIS
     Route: 042
     Dates: start: 20090603, end: 20100701
  2. COPAXONE [Concomitant]
     Indication: MULTIPLE SCLEROSIS
     Dates: start: 20050101

REACTIONS (18)
  - ARTHRALGIA [None]
  - BALANCE DISORDER [None]
  - CHILLS [None]
  - CONCUSSION [None]
  - CRYING [None]
  - DECUBITUS ULCER [None]
  - DEPRESSED MOOD [None]
  - FALL [None]
  - FURUNCLE [None]
  - INFLUENZA LIKE ILLNESS [None]
  - JOINT INJURY [None]
  - MULTIPLE SCLEROSIS RELAPSE [None]
  - MUSCLE SPASTICITY [None]
  - PRURITUS [None]
  - RIB FRACTURE [None]
  - ROAD TRAFFIC ACCIDENT [None]
  - SUICIDAL IDEATION [None]
  - VISUAL IMPAIRMENT [None]
